FAERS Safety Report 5993476-X (Version None)
Quarter: 2008Q4

REPORT INFORMATION
  Report Type: 
  Country: None (occurrence: None)
  Receive Date: 20081212
  Receipt Date: 20081208
  Transmission Date: 20090506
  Serious: Yes (Hospitalization)
  Sender: FDA-Public Use
  Company Number: JP-BAYER-200811673BYL

PATIENT
  Age: 73 Year
  Sex: Male
  Weight: 65 kg

DRUGS (9)
  1. NEXAVAR [Suspect]
     Indication: RENAL CELL CARCINOMA STAGE IV
     Dosage: TOTAL DAILY DOSE: 400 MG  UNIT DOSE: 200 MG
     Route: 048
     Dates: start: 20080701, end: 20080801
  2. NEXAVAR [Suspect]
     Dosage: TOTAL DAILY DOSE: 200 MG  UNIT DOSE: 200 MG
     Route: 048
     Dates: start: 20080917
  3. ZYLORIC [Concomitant]
     Indication: HYPERURICAEMIA
     Dosage: TOTAL DAILY DOSE: 100 MG  UNIT DOSE: 100 MG
     Route: 048
  4. URSO 250 [Concomitant]
     Dosage: AS USED: 600 MG
     Route: 048
  5. GASTER D [Concomitant]
     Dosage: AS USED: 40 MG
     Route: 048
  6. ISOPAL P [Concomitant]
     Dosage: AS USED: 3 DF  UNIT DOSE: 1 DF
     Route: 048
  7. BEROTEC [Concomitant]
     Dosage: AS USED: 7.5 MG
     Route: 048
  8. TULOBUTEROL [Concomitant]
     Dosage: TOTAL DAILY DOSE: 2 G
     Route: 061
  9. NIFELANTERN CR [Concomitant]
     Indication: HYPERTENSION
     Dosage: TOTAL DAILY DOSE: 20 MG  UNIT DOSE: 20 MG
     Route: 048

REACTIONS (3)
  - ANOREXIA [None]
  - HYPOGLYCAEMIA [None]
  - PYREXIA [None]
